FAERS Safety Report 12290919 (Version 2)
Quarter: 2016Q2

REPORT INFORMATION
  Report Type: Spontaneous
  Country: US (occurrence: US)
  Receive Date: 20160421
  Receipt Date: 20160510
  Transmission Date: 20160815
  Serious: Yes (Other)
  Sender: FDA-Public Use
  Company Number: US-AKORN PHARMACEUTICALS-2016AKN00212

PATIENT
  Sex: Female
  Weight: 74.38 kg

DRUGS (1)
  1. MYORISAN [Suspect]
     Active Substance: ISOTRETINOIN
     Indication: ACNE
     Dosage: 40 MG, 2X/DAY
     Route: 048
     Dates: start: 20160208, end: 20160310

REACTIONS (3)
  - Crying [Unknown]
  - Affect lability [Unknown]
  - Mood altered [Unknown]

NARRATIVE: CASE EVENT DATE: 2016
